FAERS Safety Report 22191580 (Version 1)
Quarter: 2023Q2

REPORT INFORMATION
  Report Type: Report from Study
  Country: US (occurrence: US)
  Receive Date: 20230410
  Receipt Date: 20230410
  Transmission Date: 20230721
  Serious: No
  Sender: FDA-Public Use
  Company Number: US-002147023-NVSC2023US082504

PATIENT
  Sex: Male

DRUGS (1)
  1. ENTRESTO [Suspect]
     Active Substance: SACUBITRIL\VALSARTAN
     Indication: Ejection fraction decreased
     Dosage: 24.26 MG, BID
     Route: 048
     Dates: start: 202302

REACTIONS (3)
  - Drug tolerance decreased [Unknown]
  - Dizziness [Unknown]
  - Hypotension [Unknown]
